FAERS Safety Report 13774772 (Version 1)
Quarter: 2017Q3

REPORT INFORMATION
  Report Type: Spontaneous
  Country: DE (occurrence: DE)
  Receive Date: 20170721
  Receipt Date: 20170721
  Transmission Date: 20171127
  Serious: Yes (Other)
  Sender: FDA-Public Use
  Company Number: DE-JNJFOC-20170712435

PATIENT
  Age: 7 Decade
  Sex: Female

DRUGS (2)
  1. REGAINE FRAUEN LOESUNG [Suspect]
     Active Substance: MINOXIDIL
     Route: 065
  2. REGAINE FRAUEN LOESUNG [Suspect]
     Active Substance: MINOXIDIL
     Indication: ANDROGENETIC ALOPECIA
     Route: 065

REACTIONS (2)
  - Pruritus [Unknown]
  - Arteriosclerosis [Not Recovered/Not Resolved]
